FAERS Safety Report 21923415 (Version 1)
Quarter: 2023Q1

REPORT INFORMATION
  Report Type: Spontaneous
  Country: US (occurrence: US)
  Receive Date: 20230129
  Receipt Date: 20230129
  Transmission Date: 20230417
  Serious: No
  Sender: FDA-Public Use
  Company Number: US-CIPLA LTD.-2022US06483

PATIENT
  Sex: Female

DRUGS (2)
  1. ALBUTEROL [Suspect]
     Active Substance: ALBUTEROL
     Indication: Dyspnoea
     Dosage: 0.18 MILLIGRAM, QID (2 PUFFS, QID (EVERY 6 HOURS)))
     Dates: start: 202112
  2. ALBUTEROL [Suspect]
     Active Substance: ALBUTEROL
     Indication: COVID-19
     Dosage: 0.18 MILLIGRAM, QID (2 PUFFS EVERY 6 HOURS)
     Dates: start: 20221026

REACTIONS (6)
  - Pyrexia [Not Recovered/Not Resolved]
  - Off label use [Unknown]
  - Product use in unapproved indication [Unknown]
  - Device delivery system issue [Unknown]
  - Product cleaning inadequate [Unknown]
  - Device issue [Unknown]

NARRATIVE: CASE EVENT DATE: 20211201
